FAERS Safety Report 9891390 (Version 1)
Quarter: 2014Q1

REPORT INFORMATION
  Report Type: Spontaneous
  Country: JP (occurrence: None)
  Receive Date: 20140210
  Receipt Date: 20140210
  Transmission Date: 20141002
  Serious: Yes (Death, Hospitalization, Other)
  Sender: FDA-Public Use
  Company Number: CO-OR-JP-2014-007

PATIENT
  Age: 31 Year
  Sex: Female
  Weight: 108 kg

DRUGS (8)
  1. PREDNISOLONE [Suspect]
  2. ALESION (ALESION) [Concomitant]
  3. UNIPHYL (UNIPHYL) [Concomitant]
  4. ACCOLATE (ACCOLATE) [Concomitant]
  5. MUCOSTA (MUCOSTA) [Concomitant]
  6. ZANTAC (ZANTAC) [Concomitant]
  7. SEREVENT (SEREVENT) [Concomitant]
  8. PULMICORT (PULMICORT) [Concomitant]

REACTIONS (7)
  - Aortic aneurysm [None]
  - Cardio-respiratory arrest [None]
  - Cardiac hypertrophy [None]
  - Arteriosclerosis [None]
  - Pulmonary congestion [None]
  - Bronchial secretion retention [None]
  - Retroperitoneal haemorrhage [None]
